FAERS Safety Report 15056638 (Version 1)
Quarter: 2018Q2

REPORT INFORMATION
  Report Type: Spontaneous
  Country: DE (occurrence: DE)
  Receive Date: 20180623
  Receipt Date: 20180623
  Transmission Date: 20180711
  Serious: Yes (Disabling, Other)
  Sender: FDA-Public Use
  Company Number: DE-TORRENT-00008196

PATIENT
  Age: 58 Year
  Sex: Female
  Weight: 113 kg

DRUGS (9)
  1. EUTHYROX [Concomitant]
     Active Substance: LEVOTHYROXINE SODIUM
     Indication: PRODUCT USED FOR UNKNOWN INDICATION
     Dosage: UNKNOWN
  2. METFORMIN [Concomitant]
     Active Substance: METFORMIN HYDROCHLORIDE
     Indication: PRODUCT USED FOR UNKNOWN INDICATION
     Dosage: UNKNOWN
  3. ALLOPURINOL. [Concomitant]
     Active Substance: ALLOPURINOL
     Indication: PRODUCT USED FOR UNKNOWN INDICATION
     Dosage: UNKNOWN
  4. TRANCOLONG [Concomitant]
     Active Substance: FLUPIRTINE MALEATE
     Indication: PRODUCT USED FOR UNKNOWN INDICATION
     Dosage: UNKNOWN
  5. VICTOZA [Concomitant]
     Active Substance: LIRAGLUTIDE
     Indication: PRODUCT USED FOR UNKNOWN INDICATION
     Dosage: VICTOZOA 6MG/ML
  6. CANDESARTAN. [Concomitant]
     Active Substance: CANDESARTAN
     Indication: PRODUCT USED FOR UNKNOWN INDICATION
     Dosage: UNKNOWN
  7. DICLOFENAC [Concomitant]
     Active Substance: DICLOFENAC
     Indication: PAIN
     Dosage: UNKNOWN
  8. MOXIFLOXACIN. [Suspect]
     Active Substance: MOXIFLOXACIN
     Indication: BRONCHITIS
     Dosage: 400 MG?MILLIGRAM(S) { 400 MG MILLIGRAM(S), 1 IN 1 DAY
     Route: 048
     Dates: start: 20170612, end: 20170616
  9. BISOPROLOL [Concomitant]
     Active Substance: BISOPROLOL
     Indication: PRODUCT USED FOR UNKNOWN INDICATION
     Dosage: UNKNOWN

REACTIONS (20)
  - Palpitations [Not Recovered/Not Resolved]
  - General physical condition abnormal [Unknown]
  - Toothache [Unknown]
  - Amnesia [Unknown]
  - Musculoskeletal pain [Unknown]
  - Impaired work ability [Not Recovered/Not Resolved]
  - Dyskinesia [Not Recovered/Not Resolved]
  - Arthralgia [Not Recovered/Not Resolved]
  - Tendon pain [Recovering/Resolving]
  - Gait inability [Recovering/Resolving]
  - Arthropathy [Not Recovered/Not Resolved]
  - Hypoacusis [Unknown]
  - Hypertension [Unknown]
  - Balance disorder [Unknown]
  - Visual impairment [Unknown]
  - Dizziness [Unknown]
  - Myalgia [Not Recovered/Not Resolved]
  - Depression [Recovering/Resolving]
  - Asthenia [Unknown]
  - Angina pectoris [Unknown]

NARRATIVE: CASE EVENT DATE: 20170612
